FAERS Safety Report 6255544-7 (Version None)
Quarter: 2009Q2

REPORT INFORMATION
  Report Type: 
  Country: None (occurrence: None)
  Receive Date: 20090630
  Receipt Date: 20090617
  Transmission Date: 20091009
  Serious: No
  Sender: FDA-Public Use
  Company Number: 2009-199034-NL

PATIENT
  Age: 32 Year
  Sex: Female

DRUGS (1)
  1. ETONOGESTREL [Suspect]
     Dosage: DF
     Dates: start: 20080215

REACTIONS (4)
  - AMENORRHOEA [None]
  - DIABETES MELLITUS [None]
  - HEADACHE [None]
  - HYPOMENORRHOEA [None]
